FAERS Safety Report 4333414-9 (Version None)
Quarter: 2004Q1

REPORT INFORMATION
  Report Type: 
  Country: None (occurrence: None)
  Receive Date: 20040329
  Receipt Date: 20040226
  Transmission Date: 20041129
  Serious: No
  Sender: FDA-Public Use
  Company Number: 04P-163-0251500-00

PATIENT
  Sex: Female

DRUGS (7)
  1. HUMIRA [Suspect]
     Indication: RHEUMATOID ARTHRITIS
     Dosage: 40 MG, SUBCUTANEOUS
     Route: 058
     Dates: start: 20030701, end: 20040212
  2. METHOTREXATE [Concomitant]
  3. PREDNISONE [Concomitant]
  4. OMEPRAZOLE [Concomitant]
  5. CYCLOBENZAPRINE HYDROCHLORIDE [Concomitant]
  6. VICODIN [Concomitant]
  7. FOLIC ACID [Concomitant]

REACTIONS (1)
  - DERMATITIS [None]
